FAERS Safety Report 4548182-5 (Version None)
Quarter: 2005Q1

REPORT INFORMATION
  Report Type: 
  Country: None (occurrence: None)
  Receive Date: 20050105
  Receipt Date: 20050105
  Transmission Date: 20050727
  Serious: Yes (Hospitalization)
  Sender: FDA-Public Use
  Company Number: None

PATIENT
  Age: 43 Year
  Sex: Male
  Weight: 106 kg

DRUGS (5)
  1. OLANZAPINE [Suspect]
     Indication: ANXIETY
     Dosage: 10 MG PO QD
     Route: 048
  2. BENZTROPINE MESYLATE [Concomitant]
  3. HALDOL [Concomitant]
  4. METOCLOPRAMIDE [Concomitant]
  5. DIPHENHYDRAMINE HCL [Concomitant]

REACTIONS (4)
  - HALLUCINATION [None]
  - HYPERHIDROSIS [None]
  - MENTAL STATUS CHANGES [None]
  - TREMOR [None]
